FAERS Safety Report 17841596 (Version 5)
Quarter: 2025Q1

REPORT INFORMATION
  Report Type: Spontaneous
  Country: US (occurrence: US)
  Receive Date: 20200529
  Receipt Date: 20250225
  Transmission Date: 20250409
  Serious: No
  Sender: PFIZER
  Company Number: US-PFIZER INC-2020212229

PATIENT
  Age: 75 Year
  Sex: Female

DRUGS (2)
  1. IBRANCE [Suspect]
     Active Substance: PALBOCICLIB
     Indication: Breast cancer female
     Route: 048
     Dates: start: 20200212
  2. IBRANCE [Suspect]
     Active Substance: PALBOCICLIB
     Indication: Breast cancer metastatic
     Route: 048
     Dates: start: 202411

REACTIONS (2)
  - Fatigue [Unknown]
  - White blood cell count decreased [Unknown]
